FAERS Safety Report 24040427 (Version 1)
Quarter: 2024Q3

REPORT INFORMATION
  Report Type: Spontaneous
  Country: US (occurrence: None)
  Receive Date: 20240701
  Receipt Date: 20240701
  Transmission Date: 20241016
  Serious: Yes (Other)
  Sender: Public
  Company Number: None

PATIENT
  Age: 74 Year
  Sex: Female
  Weight: 84.6 kg

DRUGS (11)
  1. AMLODIPINE BESYLATE [Suspect]
     Active Substance: AMLODIPINE BESYLATE
     Indication: Blood pressure increased
     Dosage: FREQUENCY : DAILY;?OTHER ROUTE : BY MOUTH;?
     Route: 050
  2. SERTRALINE [Suspect]
     Active Substance: SERTRALINE HYDROCHLORIDE
  3. METFORMIN [Concomitant]
  4. SOTALOL [Concomitant]
  5. GABAPENTIN [Concomitant]
  6. ZOLPIDEM [Concomitant]
  7. CALCIUM [Concomitant]
  8. magnesiym + zinc [Concomitant]
  9. VITAMIN B-12 [Concomitant]
  10. VITAMIN D3 [Concomitant]
     Active Substance: CHOLECALCIFEROL
  11. BENADRYL [Concomitant]
     Active Substance: DIPHENHYDRAMINE HYDROCHLORIDE

REACTIONS (12)
  - Anxiety [None]
  - Insomnia [None]
  - Headache [None]
  - Hypotension [None]
  - Dizziness [None]
  - Presyncope [None]
  - Fatigue [None]
  - Quality of life decreased [None]
  - Urinary tract infection [None]
  - Genital erythema [None]
  - Genital swelling [None]
  - Genital discomfort [None]

NARRATIVE: CASE EVENT DATE: 20231115
